FAERS Safety Report 5380331-1 (Version None)
Quarter: 2007Q3

REPORT INFORMATION
  Report Type: 
  Country: None (occurrence: None)
  Receive Date: 20070706
  Receipt Date: 20070518
  Transmission Date: 20080115
  Serious: Yes (Other)
  Sender: FDA-Public Use
  Company Number: A0651939A

PATIENT
  Age: 39 Year
  Sex: Female

DRUGS (7)
  1. TYKERB [Suspect]
     Indication: BREAST CANCER
     Dosage: 5TAB PER DAY
     Route: 048
     Dates: start: 20070412
  2. XELODA [Concomitant]
  3. CREON [Concomitant]
  4. VITAMIN CAP [Concomitant]
  5. FEMARA [Concomitant]
  6. EFFEXOR [Concomitant]
  7. OMEPRAZOLE [Concomitant]

REACTIONS (2)
  - DIARRHOEA [None]
  - PALMAR-PLANTAR ERYTHRODYSAESTHESIA SYNDROME [None]
